FAERS Safety Report 7120682-3 (Version None)
Quarter: 2010Q4

REPORT INFORMATION
  Report Type: 
  Country: None (occurrence: None)
  Receive Date: 20101119
  Receipt Date: 20101119
  Transmission Date: 20110411
  Serious: No
  Sender: FDA-Public Use
  Company Number: None

PATIENT

DRUGS (6)
  1. LORAZEPAM [Suspect]
     Indication: HERNIA
     Dosage: 1 MG 3 X DAILY
     Dates: start: 20100805
  2. LORAZEPAM [Suspect]
     Indication: PAIN
     Dosage: 1 MG 3 X DAILY
     Dates: start: 20100805
  3. LORAZEPAM [Suspect]
     Indication: SCAR
     Dosage: 1 MG 3 X DAILY
     Dates: start: 20100805
  4. LORAZEPAM [Suspect]
     Indication: HERNIA
     Dosage: 1 MG 3 X DAILY
     Dates: start: 20101011
  5. LORAZEPAM [Suspect]
     Indication: PAIN
     Dosage: 1 MG 3 X DAILY
     Dates: start: 20101011
  6. LORAZEPAM [Suspect]
     Indication: SCAR
     Dosage: 1 MG 3 X DAILY
     Dates: start: 20101011

REACTIONS (1)
  - PRODUCT QUALITY ISSUE [None]
